FAERS Safety Report 9237355 (Version 1)
Quarter: 2013Q2

REPORT INFORMATION
  Report Type: Spontaneous
  Country: JP (occurrence: JP)
  Receive Date: 20130417
  Receipt Date: 20130417
  Transmission Date: 20140414
  Serious: Yes (Hospitalization)
  Sender: FDA-Public Use
  Company Number: JP-B.I. PHARMACEUTICALS,INC./RIDGEFIELD-2013-BI-10422GD

PATIENT
  Sex: 0
  Weight: .83 kg

DRUGS (6)
  1. PERSANTIN [Suspect]
     Indication: MATERNAL EXPOSURE DURING PREGNANCY
     Route: 064
  2. HEPARIN SODIUM [Suspect]
     Indication: MATERNAL EXPOSURE DURING PREGNANCY
     Route: 064
  3. HUMAN SERUM ALBUMIN (ALBUMIN HUMAN) INFUSION [Suspect]
     Indication: MATERNAL EXPOSURE DURING PREGNANCY
     Route: 064
  4. DOPAMINE HYDROCHLORIDE [Suspect]
     Indication: MATERNAL EXPOSURE DURING PREGNANCY
     Route: 064
  5. FUROSEMIDE [Suspect]
     Indication: MATERNAL EXPOSURE DURING PREGNANCY
     Route: 064
  6. PREDNISOLONE [Suspect]
     Indication: MATERNAL EXPOSURE DURING PREGNANCY
     Route: 064

REACTIONS (5)
  - Premature baby [Unknown]
  - Amniotic cavity infection [Unknown]
  - Funisitis [Unknown]
  - Caesarean section [None]
  - Maternal drugs affecting foetus [None]
